FAERS Safety Report 9783970 (Version 1)
Quarter: 2013Q4

REPORT INFORMATION
  Report Type: Spontaneous
  Country: US (occurrence: US)
  Receive Date: 20131226
  Receipt Date: 20131226
  Transmission Date: 20140711
  Serious: Yes (Hospitalization)
  Sender: FDA-Public Use
  Company Number: US-PFIZER INC-2013362125

PATIENT
  Age: 35 Year
  Sex: Female

DRUGS (1)
  1. REVATIO [Suspect]
     Indication: PULMONARY HYPERTENSION
     Dosage: 20MG, 4TABS TID
     Dates: start: 20130101

REACTIONS (2)
  - Lung disorder [Unknown]
  - Chest pain [Unknown]
